FAERS Safety Report 17936258 (Version 1)
Quarter: 2020Q2

REPORT INFORMATION
  Report Type: Spontaneous
  Country: US (occurrence: US)
  Receive Date: 20200624
  Receipt Date: 20200624
  Transmission Date: 20200714
  Serious: No
  Sender: FDA-Public Use
  Company Number: US-MYLANLABS-2020M1055988

PATIENT
  Sex: Female

DRUGS (1)
  1. AZELASTINE HYDROCHLORIDE NASAL SPRAY [Suspect]
     Active Substance: AZELASTINE HYDROCHLORIDE
     Indication: PRODUCT USED FOR UNKNOWN INDICATION
     Dosage: UNK
     Route: 045

REACTIONS (2)
  - Hypovitaminosis [Unknown]
  - Abdominal symptom [Unknown]
